FAERS Safety Report 8571454-4 (Version None)
Quarter: 2012Q3

REPORT INFORMATION
  Report Type: 
  Country: None (occurrence: None)
  Receive Date: 20120806
  Receipt Date: 20120725
  Transmission Date: 20120928
  Serious: No
  Sender: FDA-Public Use
  Company Number: US-JNJFOC-20120713261

PATIENT
  Sex: Male
  Weight: 47.63 kg

DRUGS (4)
  1. INVEGA [Suspect]
     Route: 048
     Dates: start: 20110101, end: 20110101
  2. CLONIDINE [Concomitant]
     Indication: SLEEP DISORDER
     Dosage: 0.2 MG AT BEDTIME
     Route: 048
  3. INVEGA [Suspect]
     Indication: BIPOLAR DISORDER
     Route: 048
     Dates: start: 20120601
  4. INVEGA [Suspect]
     Route: 048
     Dates: start: 20110101, end: 20120601

REACTIONS (4)
  - THERAPEUTIC RESPONSE DECREASED [None]
  - MALAISE [None]
  - AGGRESSION [None]
  - FATIGUE [None]
